FAERS Safety Report 6289561-8 (Version None)
Quarter: 2009Q3

REPORT INFORMATION
  Report Type: 
  Country: None (occurrence: None)
  Receive Date: 20090730
  Receipt Date: 20090724
  Transmission Date: 20100115
  Serious: Yes (Hospitalization)
  Sender: FDA-Public Use
  Company Number: JP-B.I. PHARMACEUTICALS,INC./RIDGEFIELD-2009-DE-04922GD

PATIENT
  Age: 87 Year
  Sex: Female

DRUGS (4)
  1. MELOXICAM [Suspect]
     Indication: PAIN
     Route: 048
  2. CILOSTAZOL [Suspect]
     Route: 048
  3. PRONTON PUMP INHIBITOR [Suspect]
     Route: 048
  4. ETHYLICOSAPENTATE [Suspect]
     Route: 048

REACTIONS (5)
  - ANAEMIA [None]
  - GASTROINTESTINAL HAEMORRHAGE [None]
  - HEMIPLEGIA [None]
  - OESOPHAGITIS [None]
  - THROMBOTIC CEREBRAL INFARCTION [None]
